FAERS Safety Report 11013777 (Version 2)
Quarter: 2015Q2

REPORT INFORMATION
  Report Type: Spontaneous
  Country: US (occurrence: US)
  Receive Date: 20150412
  Receipt Date: 20150526
  Transmission Date: 20150821
  Serious: No
  Sender: FDA-Public Use
  Company Number: US-JNJFOC-20140810081

PATIENT
  Age: 63 Year
  Sex: Male
  Weight: 97.52 kg

DRUGS (1)
  1. PANCREAZE [Suspect]
     Active Substance: PANCRELIPASE
     Indication: PANCREATIC NEOPLASM
     Route: 048
     Dates: start: 2009

REACTIONS (4)
  - Constipation [Recovering/Resolving]
  - Therapy change [Not Recovered/Not Resolved]
  - Drug dispensing error [Not Recovered/Not Resolved]
  - Expired product administered [Not Recovered/Not Resolved]

NARRATIVE: CASE EVENT DATE: 2014
